FAERS Safety Report 23543551 (Version 2)
Quarter: 2024Q1

REPORT INFORMATION
  Report Type: Spontaneous
  Country: US (occurrence: US)
  Receive Date: 20240220
  Receipt Date: 20240301
  Transmission Date: 20240410
  Serious: No
  Sender: FDA-Public Use
  Company Number: US-SANOFI-01940974

PATIENT
  Age: 37 Year
  Sex: Female

DRUGS (2)
  1. FABRAZYME [Suspect]
     Active Substance: AGALSIDASE BETA
     Indication: Fabry^s disease
     Dosage: 70 MG, QOW
     Route: 041
     Dates: start: 20150519
  2. FABRAZYME [Suspect]
     Active Substance: AGALSIDASE BETA
     Dosage: UNK
     Route: 041
     Dates: start: 20230406

REACTIONS (2)
  - Product preparation error [Unknown]
  - Product administration error [Unknown]

NARRATIVE: CASE EVENT DATE: 20240208
